FAERS Safety Report 6548023-0 (Version None)
Quarter: 2010Q1

REPORT INFORMATION
  Report Type: 
  Country: None (occurrence: None)
  Receive Date: 20100124
  Receipt Date: 20091217
  Transmission Date: 20100710
  Serious: No
  Sender: FDA-Public Use
  Company Number: US-ALEXION-A200900707

PATIENT
  Sex: Male

DRUGS (11)
  1. SOLIRIS [Suspect]
     Indication: PAROXYSMAL NOCTURNAL HAEMOGLOBINURIA
     Dosage: 600 MG, QW
     Route: 042
     Dates: start: 20070419, end: 20070510
  2. SOLIRIS [Suspect]
     Dosage: 900 MG, Q2W
     Route: 042
     Dates: start: 20070517
  3. CYCLOSPORINE [Suspect]
     Dosage: 300 MG, BID
     Route: 048
     Dates: start: 20090805
  4. CYCLOSPORINE [Suspect]
     Dosage: 400 MG, BID
     Route: 048
     Dates: start: 20090601, end: 20090805
  5. HYDROMORPHONE [Concomitant]
     Indication: PAIN IN EXTREMITY
     Dosage: 4 MG, PRN
     Route: 048
  6. LEXAPRO [Concomitant]
     Dosage: 10 MG, QD
     Route: 048
  7. MAGNESIUM [Concomitant]
     Dosage: 1200 MG, BID
     Route: 048
  8. NULEV                              /00064702/ [Concomitant]
     Dosage: UNK
     Route: 048
  9. ATIVAN [Concomitant]
     Dosage: UNK
     Route: 048
  10. DESFERAL                           /00062903/ [Concomitant]
     Dosage: 2 G, 3X WEEK
     Route: 058
  11. DILAUDID [Concomitant]
     Dosage: UNK
     Route: 048

REACTIONS (3)
  - ABDOMINAL PAIN UPPER [None]
  - FEELING ABNORMAL [None]
  - PAIN IN EXTREMITY [None]
